FAERS Safety Report 8154193-3 (Version None)
Quarter: 2012Q1

REPORT INFORMATION
  Report Type: 
  Country: None (occurrence: None)
  Receive Date: 20120217
  Receipt Date: 20120217
  Transmission Date: 20120608
  Serious: No
  Sender: FDA-Public Use
  Company Number: None

PATIENT
  Sex: Female

DRUGS (13)
  1. CLOBETASOL PROPIONATE [Concomitant]
  2. HYDROXYZINE [Concomitant]
  3. BACLOFEN [Concomitant]
  4. VENLAFAXINE [Concomitant]
  5. VENTOLIN [Concomitant]
  6. DIAZEPAM [Concomitant]
  7. METOPROLOL TARTRATE [Concomitant]
  8. SUMATRIPTAN [Concomitant]
  9. TRIAMCINOLONE [Concomitant]
  10. DYAZIDE [Concomitant]
  11. COPAXONE [Suspect]
     Indication: MULTIPLE SCLEROSIS
     Dosage: 20MG/ML QD SC
     Route: 058
     Dates: start: 20110727, end: 20120206
  12. KEPPRA [Concomitant]
  13. PROVIGIL [Concomitant]

REACTIONS (3)
  - RASH PRURITIC [None]
  - CONTUSION [None]
  - ERYTHEMA [None]
